FAERS Safety Report 8389763-0 (Version None)
Quarter: 2012Q2

REPORT INFORMATION
  Report Type: 
  Country: None (occurrence: None)
  Receive Date: 20120529
  Receipt Date: 20120521
  Transmission Date: 20120825
  Serious: Yes (Other)
  Sender: FDA-Public Use
  Company Number: PHHY2012BR044461

PATIENT
  Sex: Male

DRUGS (10)
  1. SANDOSTATIN LAR [Suspect]
     Indication: PANCREATIC CARCINOMA METASTATIC
     Dosage: 20 MG, QMO
     Dates: start: 20000301
  2. SANDOSTATIN LAR [Suspect]
     Dosage: 60 MG, UNK
     Dates: start: 20070806
  3. SANDOSTATIN LAR [Suspect]
     Dosage: UNK UKN, UNK
     Dates: start: 20120114
  4. LUTETIUM -177 [Concomitant]
     Dosage: UNK UKN, UNK
     Dates: start: 20030601, end: 20040101
  5. AVASTIN [Concomitant]
     Dosage: UNK UKN, UNK
  6. INTERFERON [Concomitant]
     Indication: HEPATIC NEOPLASM
     Dosage: UNK UKN, UNK
     Dates: start: 20001101, end: 20030401
  7. BEVACIZUMAB [Concomitant]
     Dosage: 1 DF, TIW
     Dates: end: 20120117
  8. CREON [Concomitant]
  9. SANDOSTATIN LAR [Suspect]
     Dosage: 30 MG, UNK
     Dates: start: 20050308, end: 20070701
  10. AVASTIN [Concomitant]
     Dosage: UNK UKN, UNK
     Dates: start: 20120117

REACTIONS (18)
  - GENERAL PHYSICAL HEALTH DETERIORATION [None]
  - LAGOPHTHALMOS [None]
  - BLOOD UREA INCREASED [None]
  - DIARRHOEA [None]
  - DECREASED APPETITE [None]
  - ASTHENIA [None]
  - NAUSEA [None]
  - LYMPHADENOPATHY [None]
  - BLOOD CHROMOGRANIN A INCREASED [None]
  - NEOPLASM MALIGNANT [None]
  - HEPATIC LESION [None]
  - HEPATIC MASS [None]
  - FLUSHING [None]
  - CONJUNCTIVAL HYPERAEMIA [None]
  - GAMMA-GLUTAMYLTRANSFERASE INCREASED [None]
  - HYPERTROPHY [None]
  - CHOLANGITIS [None]
  - HEPATIC ENZYME DECREASED [None]
